FAERS Safety Report 8536937-1 (Version None)
Quarter: 2012Q3

REPORT INFORMATION
  Report Type: 
  Country: None (occurrence: None)
  Receive Date: 20120718
  Receipt Date: 20120718
  Transmission Date: 20120928
  Serious: Yes (Other)
  Sender: FDA-Public Use
  Company Number: None

PATIENT
  Age: 55 Year
  Sex: Male
  Weight: 81.8 kg

DRUGS (1)
  1. BUPROPION HCL [Suspect]
     Indication: SMOKING CESSATION THERAPY
     Dosage: 300 MG EVERY DAY PO
     Route: 048
     Dates: start: 20120530, end: 20120601

REACTIONS (2)
  - AGITATION [None]
  - SUICIDAL IDEATION [None]
